FAERS Safety Report 7521012-5 (Version None)
Quarter: 2011Q2

REPORT INFORMATION
  Report Type: 
  Country: None (occurrence: None)
  Receive Date: 20110603
  Receipt Date: 20101115
  Transmission Date: 20111010
  Serious: Yes (Other)
  Sender: FDA-Public Use
  Company Number: US-BAYER-201041612NA

PATIENT
  Sex: Female

DRUGS (1)
  1. AVELOX [Suspect]
     Indication: SINUSITIS
     Route: 048
     Dates: start: 20101112, end: 20101112

REACTIONS (5)
  - HEART RATE IRREGULAR [None]
  - NAUSEA [None]
  - DIZZINESS [None]
  - GENERALISED ERYTHEMA [None]
  - PALPITATIONS [None]
